FAERS Safety Report 8779686 (Version 1)
Quarter: 2012Q4

REPORT INFORMATION
  Report Type: 
  Country: IT (occurrence: FR)
  Receive Date: 20120911
  Receipt Date: 20120911
  Transmission Date: 20130627
  Serious: Yes (Hospitalization)
  Sender: FDA-Public Use
  Company Number: FR-FRI-1000012661

PATIENT
  Age: 89 Year
  Sex: Female

DRUGS (6)
  1. NEBIVOLOL [Suspect]
     Indication: HYPERTENSION
     Dosage: 2.5 mg
     Route: 048
  2. ARICEPT [Suspect]
     Indication: DEMENTIA ALZHEIMER^S TYPE
     Dosage: 15 mg
     Route: 048
  3. PREVISCAN [Concomitant]
     Route: 048
  4. RAMIPRIL [Concomitant]
  5. RISPERIDONE [Concomitant]
  6. FUROSEMIDE [Concomitant]

REACTIONS (6)
  - Bradycardia [Recovered/Resolved]
  - Malaise [Recovered/Resolved]
  - Loss of consciousness [Recovered/Resolved]
  - Convulsion [Recovered/Resolved]
  - Drug interaction [Recovered/Resolved]
  - Hypotension [Recovered/Resolved]
